FAERS Safety Report 10207075 (Version 1)
Quarter: 2014Q2

REPORT INFORMATION
  Report Type: Spontaneous
  Country: NL (occurrence: NL)
  Receive Date: 20140530
  Receipt Date: 20140530
  Transmission Date: 20141212
  Serious: Yes (Life-Threatening, Hospitalization)
  Sender: FDA-Public Use
  Company Number: PHHY2014NL064867

PATIENT
  Sex: Female
  Weight: 80 kg

DRUGS (9)
  1. HYDROCHLOROTHIAZIDE,VALSARTAN [Suspect]
     Dosage: 1 DF (VALS 160 MG / HYDR 12.5 MG), DAILY
     Dates: start: 2012, end: 20140512
  2. BISOPROLOL [Suspect]
     Dosage: 2.5 MG, DAILY
     Dates: start: 2012
  3. BISOPROLOL [Suspect]
     Dosage: 2.5 MG, DAILY
     Dates: start: 2012, end: 20140512
  4. MIRABEGRON [Suspect]
     Dosage: 50 MG, DAILY
     Dates: start: 20140507, end: 20140513
  5. JANUMET [Suspect]
     Dosage: UNK UKN, UNK
     Dates: start: 2012, end: 20140512
  6. BARNIDIPINE [Suspect]
     Indication: DIABETES MELLITUS
     Dosage: 10 MG, DAILY
     Dates: start: 2012, end: 20140512
  7. BARNIDIPINE [Suspect]
     Indication: URINARY INCONTINENCE
  8. BARNIDIPINE [Suspect]
     Indication: HYPERTENSION
  9. CRESTOR [Suspect]
     Dosage: 2 DF (ROSU 10 MG), DAILY
     Dates: start: 2012

REACTIONS (5)
  - Urosepsis [Recovered/Resolved]
  - Renal failure [Recovering/Resolving]
  - Blood creatine phosphokinase increased [Recovered/Resolved]
  - Lactic acidosis [Recovered/Resolved]
  - Drug interaction [Recovered/Resolved]
